FAERS Safety Report 6797667-X (Version None)
Quarter: 2010Q2

REPORT INFORMATION
  Report Type: 
  Country: None (occurrence: None)
  Receive Date: 20100623
  Receipt Date: 20100615
  Transmission Date: 20101027
  Serious: Yes (Death)
  Sender: FDA-Public Use
  Company Number: 7008097

PATIENT
  Age: 52 Year
  Sex: Male

DRUGS (1)
  1. REBIF [Suspect]
     Indication: DRUG USE FOR UNKNOWN INDICATION
     Dates: start: 20090429

REACTIONS (1)
  - DEATH [None]
